FAERS Safety Report 18880344 (Version 3)
Quarter: 2021Q3

REPORT INFORMATION
  Report Type: Spontaneous
  Country: US (occurrence: US)
  Receive Date: 20210211
  Receipt Date: 20210818
  Transmission Date: 20211014
  Serious: Yes (Other)
  Sender: FDA-Public Use
  Company Number: US-ASTRAZENECA-2021A039377

PATIENT
  Age: 52 Year
  Sex: Male

DRUGS (33)
  1. PLAVIX [Concomitant]
     Active Substance: CLOPIDOGREL BISULFATE
  2. CARVEDILOL. [Concomitant]
     Active Substance: CARVEDILOL
  3. CETIRIZINE [Concomitant]
     Active Substance: CETIRIZINE HYDROCHLORIDE
  4. DEXILANT [Suspect]
     Active Substance: DEXLANSOPRAZOLE
     Indication: GASTROOESOPHAGEAL REFLUX DISEASE
     Route: 065
     Dates: start: 2009, end: 2016
  5. LEVOFLOXACIN. [Concomitant]
     Active Substance: LEVOFLOXACIN
     Indication: ANTIBIOTIC THERAPY
     Route: 065
     Dates: start: 2011
  6. ENDOCET [Concomitant]
     Active Substance: ACETAMINOPHEN\OXYCODONE HYDROCHLORIDE
  7. TRAMADOL. [Concomitant]
     Active Substance: TRAMADOL
     Indication: PAIN
     Route: 065
     Dates: start: 2011
  8. AZITHROMYCIN ANHYDROUS. [Concomitant]
     Active Substance: AZITHROMYCIN ANHYDROUS
  9. CELEBREX [Concomitant]
     Active Substance: CELECOXIB
  10. GABAPENTIN. [Concomitant]
     Active Substance: GABAPENTIN
  11. NEXIUM [Suspect]
     Active Substance: ESOMEPRAZOLE MAGNESIUM
     Indication: GASTROOESOPHAGEAL REFLUX DISEASE
     Route: 048
     Dates: start: 2009, end: 2016
  12. NEXIUM [Suspect]
     Active Substance: ESOMEPRAZOLE MAGNESIUM
     Indication: GASTROOESOPHAGEAL REFLUX DISEASE
     Route: 048
     Dates: start: 2016
  13. SIMVASTATIN. [Concomitant]
     Active Substance: SIMVASTATIN
     Indication: BLOOD CHOLESTEROL
     Route: 065
     Dates: start: 2011
  14. DOXYCYCLINE. [Concomitant]
     Active Substance: DOXYCYCLINE
  15. PRAVASTATIN. [Concomitant]
     Active Substance: PRAVASTATIN
  16. SUCRALFATE. [Concomitant]
     Active Substance: SUCRALFATE
  17. METOCLOPRAMIDE. [Concomitant]
     Active Substance: METOCLOPRAMIDE
  18. CYCLOBENZAPRINE. [Concomitant]
     Active Substance: CYCLOBENZAPRINE
  19. LISINOPRIL. [Concomitant]
     Active Substance: LISINOPRIL
     Indication: CARDIAC DISORDER
     Route: 065
     Dates: start: 2011
  20. BACLOFEN. [Concomitant]
     Active Substance: BACLOFEN
  21. DEXILANT [Suspect]
     Active Substance: DEXLANSOPRAZOLE
     Indication: GASTROOESOPHAGEAL REFLUX DISEASE
     Route: 065
     Dates: start: 2012, end: 2014
  22. RANITIDINE. [Concomitant]
     Active Substance: RANITIDINE
  23. IBUPROFEN. [Concomitant]
     Active Substance: IBUPROFEN
  24. ISOSORBIDE MONONITRATE. [Concomitant]
     Active Substance: ISOSORBIDE MONONITRATE
  25. AVELOX [Concomitant]
     Active Substance: MOXIFLOXACIN HYDROCHLORIDE
  26. ACIPHEX [Concomitant]
     Active Substance: RABEPRAZOLE SODIUM
  27. MELOXICAM. [Concomitant]
     Active Substance: MELOXICAM
  28. OMEPRAZOLE. [Suspect]
     Active Substance: OMEPRAZOLE
     Indication: GASTROOESOPHAGEAL REFLUX DISEASE
     Route: 065
     Dates: start: 2010, end: 2012
  29. FAMOTIDINE. [Concomitant]
     Active Substance: FAMOTIDINE
  30. CEPHALEXIN. [Concomitant]
     Active Substance: CEPHALEXIN
  31. GLIPIZIDE. [Concomitant]
     Active Substance: GLIPIZIDE
  32. SMZ/TMP [Concomitant]
     Active Substance: SULFAMETHOXAZOLE\TRIMETHOPRIM
  33. FLUTICASONE. [Concomitant]
     Active Substance: FLUTICASONE

REACTIONS (2)
  - Renal failure [Unknown]
  - Chronic kidney disease [Not Recovered/Not Resolved]

NARRATIVE: CASE EVENT DATE: 2015
